FAERS Safety Report 13020518 (Version 1)
Quarter: 2016Q4

REPORT INFORMATION
  Report Type: Report from Study
  Country: US (occurrence: US)
  Receive Date: 20161212
  Receipt Date: 20161212
  Transmission Date: 20170207
  Serious: Yes (Hospitalization)
  Sender: FDA-Public Use
  Company Number: US-ACTELION-A-US2016-144795

PATIENT
  Age: 78 Year
  Sex: Female

DRUGS (2)
  1. ELIQUIS [Concomitant]
     Active Substance: APIXABAN
  2. TRACLEER [Suspect]
     Active Substance: BOSENTAN
     Indication: PULMONARY ARTERIAL HYPERTENSION
     Dosage: 125 MG, BID
     Route: 048
     Dates: start: 20151209

REACTIONS (8)
  - Dyspnoea [Unknown]
  - Atrial fibrillation [Unknown]
  - Exercise tolerance decreased [Unknown]
  - Fatigue [Unknown]
  - Dizziness [Unknown]
  - Oedema [Unknown]
  - Ascites [Unknown]
  - Cardioversion [Unknown]
